FAERS Safety Report 10062192 (Version 2)
Quarter: 2014Q2

REPORT INFORMATION
  Report Type: Spontaneous
  Country: DE (occurrence: DE)
  Receive Date: 20140407
  Receipt Date: 20140520
  Transmission Date: 20141212
  Serious: Yes (Other)
  Sender: FDA-Public Use
  Company Number: DE-JNJFOC-20140402551

PATIENT
  Age: 51 Year
  Sex: Female
  Weight: 55 kg

DRUGS (6)
  1. XARELTO [Suspect]
     Indication: JUGULAR VEIN THROMBOSIS
     Route: 048
     Dates: start: 20130826, end: 20140214
  2. XARELTO [Suspect]
     Indication: JUGULAR VEIN THROMBOSIS
     Route: 048
     Dates: start: 20130805, end: 20130826
  3. AVASTIN [Concomitant]
     Route: 041
  4. VOLTAREN [Concomitant]
     Route: 065
  5. VALORON [Concomitant]
     Route: 065
  6. METAMIZOLE SODIUM [Concomitant]
     Route: 065

REACTIONS (2)
  - Subclavian vein thrombosis [Recovering/Resolving]
  - Drug ineffective [Unknown]
